FAERS Safety Report 19713882 (Version 1)
Quarter: 2021Q3

REPORT INFORMATION
  Report Type: Spontaneous
  Country: US (occurrence: US)
  Receive Date: 20210817
  Receipt Date: 20210817
  Transmission Date: 20211014
  Serious: No
  Sender: FDA-Public Use
  Company Number: None

PATIENT
  Age: 20 Year
  Sex: Male

DRUGS (1)
  1. EMTRICITABINE/TENOFOVIR [Suspect]
     Active Substance: EMTRICITABINE\TENOFOVIR
     Route: 048
     Dates: start: 20210702, end: 20210817

REACTIONS (2)
  - Therapy cessation [None]
  - Gastrointestinal disorder [None]

NARRATIVE: CASE EVENT DATE: 20210817
